FAERS Safety Report 15168722 (Version 1)
Quarter: 2018Q3

REPORT INFORMATION
  Report Type: Spontaneous
  Country: US (occurrence: US)
  Receive Date: 20180720
  Receipt Date: 20180720
  Transmission Date: 20181010
  Serious: No
  Sender: FDA-Public Use
  Company Number: US-TEVA-2018-US-929016

PATIENT
  Sex: Female

DRUGS (9)
  1. LEVOTHYROXIN [Concomitant]
     Active Substance: LEVOTHYROXINE
  2. VITAMIN D2 [Concomitant]
     Active Substance: ERGOCALCIFEROL
  3. VITAMIN D3 [Concomitant]
     Active Substance: CHOLECALCIFEROL
  4. BIOTIN [Concomitant]
     Active Substance: BIOTIN
  5. COPAXONE [Suspect]
     Active Substance: GLATIRAMER ACETATE
     Indication: MULTIPLE SCLEROSIS
     Route: 058
     Dates: start: 20160624
  6. VITAMIN D [Concomitant]
     Active Substance: CHOLECALCIFEROL
  7. AMPYRA [Concomitant]
     Active Substance: DALFAMPRIDINE
  8. PAXIL [Concomitant]
     Active Substance: PAROXETINE HYDROCHLORIDE
  9. BUPROPION. [Concomitant]
     Active Substance: BUPROPION

REACTIONS (3)
  - Fatigue [Not Recovered/Not Resolved]
  - Depression [Recovered/Resolved]
  - Gait disturbance [Recovered/Resolved]
